FAERS Safety Report 19755497 (Version 3)
Quarter: 2021Q4

REPORT INFORMATION
  Report Type: Spontaneous
  Country: US (occurrence: US)
  Receive Date: 20210827
  Receipt Date: 20211201
  Transmission Date: 20220303
  Serious: No
  Sender: FDA-Public Use
  Company Number: NVSC2021US190619

PATIENT
  Sex: Female

DRUGS (1)
  1. COSENTYX [Suspect]
     Active Substance: SECUKINUMAB
     Indication: Product used for unknown indication
     Dosage: 150 MG
     Route: 065

REACTIONS (4)
  - Contusion [Unknown]
  - Needle issue [Unknown]
  - Device leakage [Unknown]
  - Incorrect dose administered [Unknown]
